FAERS Safety Report 5811078-2 (Version None)
Quarter: 2008Q3

REPORT INFORMATION
  Report Type: 
  Country: None (occurrence: None)
  Receive Date: 20080716
  Receipt Date: 20080711
  Transmission Date: 20090109
  Serious: Yes (Other)
  Sender: FDA-Public Use
  Company Number: US-WYE-H04170308

PATIENT
  Age: 70 Year
  Sex: Female
  Weight: 71.73 kg

DRUGS (2)
  1. ADVIL PM [Suspect]
     Indication: INSOMNIA
     Route: 048
     Dates: start: 20080501, end: 20080514
  2. ACTONEL [Concomitant]
     Indication: OSTEOPOROSIS
     Dosage: UNKNOWN
     Route: 065

REACTIONS (3)
  - BLOOD PRESSURE DECREASED [None]
  - LOSS OF CONSCIOUSNESS [None]
  - VERTIGO [None]
